FAERS Safety Report 6645737-9 (Version None)
Quarter: 2010Q1

REPORT INFORMATION
  Report Type: 
  Country: None (occurrence: None)
  Receive Date: 20100323
  Receipt Date: 20100310
  Transmission Date: 20100710
  Serious: Yes (Hospitalization)
  Sender: FDA-Public Use
  Company Number: FR-ELI_LILLY_AND_COMPANY-FR201001003915

PATIENT
  Age: 75 Year
  Sex: Female
  Weight: 69 kg

DRUGS (4)
  1. FORTEO [Suspect]
     Indication: OSTEOPOROSIS
     Dosage: 20 UG, DAILY (1/D)
     Route: 058
     Dates: start: 20090819, end: 20100120
  2. DAFALGAN [Concomitant]
     Indication: PAIN
     Dosage: 3-4
     Route: 048
  3. OROCAL D(3) [Concomitant]
     Indication: OSTEOPOROSIS
     Dosage: 2 TABLETS, UNK
     Route: 048
  4. AMITRIPTYLINE HCL [Concomitant]
     Dosage: 10 DROPS, UNK
     Route: 048
     Dates: end: 20091101

REACTIONS (8)
  - ABDOMINAL PAIN UPPER [None]
  - ALOPECIA [None]
  - DYSPNOEA [None]
  - FATIGUE [None]
  - HEPATOCELLULAR INJURY [None]
  - PALPITATIONS [None]
  - VOMITING [None]
  - WEIGHT INCREASED [None]
